FAERS Safety Report 4732990-1 (Version None)
Quarter: 2005Q3

REPORT INFORMATION
  Report Type: 
  Country: None (occurrence: None)
  Receive Date: 20050803
  Receipt Date: 20050725
  Transmission Date: 20060218
  Serious: Yes (Hospitalization)
  Sender: FDA-Public Use
  Company Number: PHBS2005JP10911

PATIENT
  Age: 47 Year
  Sex: Female

DRUGS (3)
  1. GLEEVEC [Suspect]
     Dosage: 20 DF, ONCE/SINGLE
     Route: 048
  2. HALCION [Suspect]
     Dosage: 28 DF, ONCE/SINGLE
     Route: 048
  3. LENDORMIN [Suspect]
     Dosage: 50 DF, ONCE/SINGLE
     Route: 048

REACTIONS (2)
  - BLOOD CREATINE PHOSPHOKINASE INCREASED [None]
  - SUICIDE ATTEMPT [None]
